FAERS Safety Report 6377484-5 (Version None)
Quarter: 2009Q3

REPORT INFORMATION
  Report Type: 
  Country: None (occurrence: None)
  Receive Date: 20090925
  Receipt Date: 20090831
  Transmission Date: 20100115
  Serious: No
  Sender: FDA-Public Use
  Company Number: BR-ROCHE-654469

PATIENT
  Sex: Male
  Weight: 11 kg

DRUGS (1)
  1. TAMIFLU [Suspect]
     Route: 048
     Dates: start: 20090830

REACTIONS (4)
  - DECREASED APPETITE [None]
  - FEELING OF DESPAIR [None]
  - MEDICATION ERROR [None]
  - PYREXIA [None]
